FAERS Safety Report 5122908-4 (Version None)
Quarter: 2006Q4

REPORT INFORMATION
  Report Type: 
  Country: None (occurrence: None)
  Receive Date: 20061009
  Receipt Date: 20060927
  Transmission Date: 20070319
  Serious: Yes (Hospitalization)
  Sender: FDA-Public Use
  Company Number: 2006PK01983

PATIENT
  Age: 861 Month
  Sex: Female
  Weight: 79 kg

DRUGS (4)
  1. NOLVADEX [Suspect]
     Indication: BREAST CANCER
     Route: 048
     Dates: start: 20031106
  2. DOXAZOSIN [Concomitant]
     Indication: HYPERTENSION
  3. LEVOTHYROXINE SODIUM [Concomitant]
     Indication: HYPOTHYROIDISM
  4. THEOPHYLLINE [Concomitant]

REACTIONS (2)
  - POSTMENOPAUSAL HAEMORRHAGE [None]
  - UTERINE PROLAPSE [None]
